APPROVED DRUG PRODUCT: VITRASERT
Active Ingredient: GANCICLOVIR
Strength: 4.5MG
Dosage Form/Route: IMPLANT;IMPLANTATION
Application: N020569 | Product #001
Applicant: BAUSCH AND LOMB INC
Approved: Mar 4, 1996 | RLD: No | RS: No | Type: DISCN